FAERS Safety Report 7326173-9 (Version None)
Quarter: 2011Q1

REPORT INFORMATION
  Report Type: 
  Country: None (occurrence: None)
  Receive Date: 20110302
  Receipt Date: 20110223
  Transmission Date: 20110831
  Serious: Yes (Other)
  Sender: FDA-Public Use
  Company Number: US-JNJFOC-20101207021

PATIENT
  Sex: Female
  Weight: 61.69 kg

DRUGS (3)
  1. TOPAMAX [Suspect]
     Indication: CONVULSION
     Route: 048
  2. KLONOPIN [Concomitant]
     Indication: ANXIETY
     Dosage: AS NEEDED
     Route: 048
  3. TOPIRAMATE [Suspect]
     Indication: CONVULSION
     Route: 048

REACTIONS (5)
  - VAGINAL MUCOSAL BLISTERING [None]
  - SWELLING [None]
  - CONVULSION [None]
  - PARAESTHESIA [None]
  - FEELING ABNORMAL [None]
